FAERS Safety Report 24779304 (Version 1)
Quarter: 2024Q4

REPORT INFORMATION
  Report Type: Spontaneous
  Country: SE (occurrence: SE)
  Receive Date: 20241226
  Receipt Date: 20241226
  Transmission Date: 20250115
  Serious: Yes (Other)
  Sender: PFIZER
  Company Number: SE-PFIZER INC-PV202400163045

PATIENT
  Age: 11 Year
  Sex: Female

DRUGS (4)
  1. VINCRISTINE SULFATE [Suspect]
     Active Substance: VINCRISTINE SULFATE
     Indication: Spindle cell sarcoma
     Dosage: 26 MG, CYCLIC
     Route: 042
  2. IFOSFAMIDE [Suspect]
     Active Substance: IFOSFAMIDE
     Indication: Spindle cell sarcoma
     Dosage: CUMULATIVE DOSE 54000 MG/KVM, CYCLIC
     Route: 042
  3. DOXORUBICIN [Suspect]
     Active Substance: DOXORUBICIN
     Indication: Spindle cell sarcoma
     Dosage: 240 MG/KVM, CYCLIC
     Route: 042
  4. ACTINOMYCIN D [Suspect]
     Active Substance: DACTINOMYCIN
     Indication: Spindle cell sarcoma
     Dosage: 7.5 MG/KVM, CYCLIC

REACTIONS (3)
  - Tumour necrosis [Unknown]
  - Tumour haemorrhage [Unknown]
  - Off label use [Unknown]
